FAERS Safety Report 7198287-8 (Version None)
Quarter: 2010Q4

REPORT INFORMATION
  Report Type: 
  Country: None (occurrence: None)
  Receive Date: 20101227
  Receipt Date: 20101214
  Transmission Date: 20110411
  Serious: No
  Sender: FDA-Public Use
  Company Number: PHHY2009AT34391

PATIENT
  Sex: Male
  Weight: 61 kg

DRUGS (10)
  1. RASILEZ [Suspect]
     Indication: HYPERTENSION
     Dosage: UNK
     Route: 048
     Dates: start: 20081201
  2. ENALAPRIL MALEATE [Concomitant]
     Indication: HYPERTENSION
     Dosage: 20 MG DAILY
     Route: 048
     Dates: start: 20060101
  3. CORENITEC [Concomitant]
     Indication: HYPERTENSION
     Dosage: 20/12.5 MG DAILY
     Route: 048
     Dates: start: 20060101
  4. MOXONIDINE [Concomitant]
     Dosage: 0.4 MG, BID
  5. EBRANTIL [Concomitant]
     Dosage: 60 MG, BID
  6. SOTACOR [Concomitant]
     Dosage: 160 MG, TID
  7. ASPIRIN [Concomitant]
     Dosage: ONCE DAILY
  8. DIABETEX [Concomitant]
     Dosage: 1000 MG, UNK
  9. DIAMICRON MR [Concomitant]
     Dosage: 30 MG, UNK
  10. SYSCOR [Concomitant]
     Dosage: 10 MG, BID

REACTIONS (3)
  - BORRELIA INFECTION [None]
  - JOINT SWELLING [None]
  - POLYARTHRITIS [None]
